FAERS Safety Report 7202138-2 (Version None)
Quarter: 2010Q4

REPORT INFORMATION
  Report Type: 
  Country: None (occurrence: None)
  Receive Date: 20101216
  Receipt Date: 20101209
  Transmission Date: 20110411
  Serious: Yes (Hospitalization)
  Sender: FDA-Public Use
  Company Number: 20109622

PATIENT
  Age: 65 Year
  Sex: Female

DRUGS (4)
  1. LIORESAL [Suspect]
     Indication: MUSCLE SPASTICITY
     Dosage: MCG, DAILY, INTRATHECAL
     Route: 037
  2. HYDROMORPHONE HCL [Concomitant]
  3. BUPIVACAINE HCL [Concomitant]
  4. DROPERIDOL [Concomitant]

REACTIONS (6)
  - ASTHENIA [None]
  - CERVICAL SPINAL STENOSIS [None]
  - INCONTINENCE [None]
  - MUSCULAR WEAKNESS [None]
  - PAIN [None]
  - SPINAL CORD COMPRESSION [None]
